FAERS Safety Report 16476304 (Version 1)
Quarter: 2019Q2

REPORT INFORMATION
  Report Type: Other
  Country: DE (occurrence: DE)
  Receive Date: 20190626
  Receipt Date: 20190626
  Transmission Date: 20190711
  Serious: Yes (Death, Other)
  Sender: FDA-Public Use
  Company Number: DE-DEXPHARM-20190426

PATIENT
  Age: 61 Year

DRUGS (9)
  1. SALMETEROL/FLUTICASONE [Suspect]
     Active Substance: FLUTICASONE PROPIONATE\SALMETEROL XINAFOATE
  2. TIOTROPIUM BROMIDE [Suspect]
     Active Substance: TIOTROPIUM BROMIDE
  3. AUBAGIO [Suspect]
     Active Substance: TERIFLUNOMIDE
     Indication: RELAPSING-REMITTING MULTIPLE SCLEROSIS
     Dosage: DAILY DOSE: 14 MG MILLGRAM(S) EVERY DAYS
  4. DIPYRONE [Suspect]
     Active Substance: DIPYRONE
  5. METOPROLOL TARTRATE. [Suspect]
     Active Substance: METOPROLOL TARTRATE
  6. OMEPRAZOLE. [Suspect]
     Active Substance: OMEPRAZOLE
  7. TORASEMIDE [Suspect]
     Active Substance: TORSEMIDE
  8. PHENPROCOUMON [Suspect]
     Active Substance: PHENPROCOUMON
  9. PREDNISOLONE. [Suspect]
     Active Substance: PREDNISOLONE

REACTIONS (1)
  - Bronchopulmonary aspergillosis [Fatal]
